FAERS Safety Report 6379990-6 (Version None)
Quarter: 2009Q3

REPORT INFORMATION
  Report Type: 
  Country: None (occurrence: None)
  Receive Date: 20090928
  Receipt Date: 20090918
  Transmission Date: 20100115
  Serious: Yes (Other)
  Sender: FDA-Public Use
  Company Number: US-ASTRAZENECA-2009SE14254

PATIENT
  Age: 18540 Day
  Sex: Female
  Weight: 72.6 kg

DRUGS (2)
  1. PRILOSEC [Suspect]
     Indication: GASTROOESOPHAGEAL REFLUX DISEASE
     Route: 048
     Dates: end: 20010101
  2. PLAVIX [Concomitant]

REACTIONS (1)
  - STENT PLACEMENT [None]
